FAERS Safety Report 21959935 (Version 1)
Quarter: 2023Q1

REPORT INFORMATION
  Report Type: Spontaneous
  Country: US (occurrence: None)
  Receive Date: 20230204
  Receipt Date: 20230204
  Transmission Date: 20230418
  Serious: Yes (Death)
  Sender: FDA-Public Use
  Company Number: None

PATIENT
  Age: 14 Year
  Sex: Female

DRUGS (22)
  1. AMBRISENTAN [Suspect]
     Active Substance: AMBRISENTAN
     Indication: Pulmonary arterial hypertension
     Dosage: 10 MG ORAL?TAKE 1 TABLET (10 MG TOTAL) BY MOUTH ONE TIME A DAY?
     Route: 048
     Dates: start: 20211223
  2. AMOXICILLIN SUS [Concomitant]
  3. CEFDINIR SUS [Concomitant]
  4. CIPROFLOXACN SOL [Concomitant]
  5. FLUTICASONE SPR [Concomitant]
  6. FUROSEMIDE SOL [Concomitant]
  7. HC VALERATE QIN [Concomitant]
  8. IPRATROPIUM SOL [Concomitant]
  9. MULTI-VIT FL CHW [Concomitant]
  10. NASONEX SPR [Concomitant]
  11. PERMETHRIN CRE [Concomitant]
  12. POLY- VIT FL DRO [Concomitant]
  13. PREDNISOLONE SOL [Concomitant]
  14. RANITIDINE SYP [Concomitant]
  15. REMODULIN INJ [Concomitant]
  16. SINGULAIR [Concomitant]
     Active Substance: MONTELUKAST SODIUM
  17. SODIUM CHLOR NEB [Concomitant]
  18. TADALAFIL [Concomitant]
     Active Substance: TADALAFIL
  19. TAMIFLU SUS [Concomitant]
  20. TRIAMCINOLON [Concomitant]
  21. VIGAMOX [Concomitant]
     Active Substance: MOXIFLOXACIN HYDROCHLORIDE
  22. XOPENEX [Concomitant]
     Active Substance: LEVALBUTEROL HYDROCHLORIDE

REACTIONS (1)
  - Death [None]

NARRATIVE: CASE EVENT DATE: 20230203
